FAERS Safety Report 9511633 (Version 1)
Quarter: 2013Q3

REPORT INFORMATION
  Report Type: Spontaneous
  Country: IT (occurrence: None)
  Receive Date: 20130906
  Receipt Date: 20130906
  Transmission Date: 20140515
  Serious: Yes (Hospitalization)
  Sender: FDA-Public Use
  Company Number: FK201303860

PATIENT
  Age: 49 Year
  Sex: Male

DRUGS (8)
  1. PROPOFOL [Suspect]
     Indication: ANAESTHESIA
     Route: 042
     Dates: start: 20130521, end: 20130521
  2. OMEPRAZOL [Suspect]
     Indication: ANAESTHESIA
     Dosage: 40 MG, 1 IN 1 D, BU
     Route: 002
     Dates: start: 20130521, end: 20130521
  3. REMIFENTANIL [Suspect]
     Indication: ANAESTHESIA
     Route: 042
     Dates: start: 20130521, end: 20130521
  4. CEFAMEZIN [Suspect]
     Indication: ANTIBIOTIC PROPHYLAXIS
     Dosage: 2 GM,1 IN 1 D, INTRAVENOUS
     Route: 042
     Dates: start: 20130521, end: 20130522
  5. ESMERON [Suspect]
     Route: 042
     Dates: start: 20130521, end: 20130522
  6. TORADOL [Suspect]
     Indication: POSTOPERATIVE ANALGESIA
     Route: 042
     Dates: start: 20130521, end: 20130522
  7. PERFALGAN [Suspect]
     Indication: POSTOPERATIVE ANALGESIA
     Route: 042
     Dates: start: 20130521, end: 20130522
  8. IVOR [Suspect]
     Indication: PROPHYLAXIS
     Dosage: 1 IN 1 D, SUBCUTANEOUS
     Route: 058
     Dates: start: 20130521, end: 20130524

REACTIONS (4)
  - Renal failure acute [None]
  - Pyrexia [None]
  - Vomiting [None]
  - Lung disorder [None]
